FAERS Safety Report 4339194-5 (Version None)
Quarter: 2004Q2

REPORT INFORMATION
  Report Type: 
  Country: None (occurrence: None)
  Receive Date: 20040412
  Receipt Date: 20040331
  Transmission Date: 20050107
  Serious: Yes (Death, Other)
  Sender: FDA-Public Use
  Company Number: 2003122647

PATIENT
  Age: 63 Year
  Sex: Female
  Weight: 63.5036 kg

DRUGS (8)
  1. TIKOSYN [Suspect]
     Indication: SUPRAVENTRICULAR TACHYCARDIA
     Dosage: 1000 MCG (BID), ORAL
     Route: 048
     Dates: start: 20031126, end: 20040107
  2. ENALAPRIL MALEATE [Concomitant]
  3. MONTELUKAST SODIUM (MONTELUKAST SODIUM) [Concomitant]
  4. PREDNISONE [Concomitant]
  5. CALCIUM CARBONATE (CALCIUM CARBONATE) [Concomitant]
  6. ALPRAZOLAM [Concomitant]
  7. LEVOFLOXACIN [Concomitant]
  8. ATORAVSTATIN (ATORVASTATIN) [Concomitant]

REACTIONS (15)
  - ABDOMINAL PAIN UPPER [None]
  - ANOREXIA [None]
  - ARRHYTHMIA [None]
  - ASTHENIA [None]
  - CARDIAC DISORDER [None]
  - CONSTIPATION [None]
  - EAR PAIN [None]
  - FEELING HOT [None]
  - HAEMOGLOBIN DECREASED [None]
  - INTESTINAL OBSTRUCTION [None]
  - LUNG CANCER METASTATIC [None]
  - METASTASES TO LARGE INTESTINE [None]
  - PALPITATIONS [None]
  - SUPRAVENTRICULAR TACHYCARDIA [None]
  - WEIGHT DECREASED [None]
